FAERS Safety Report 7629086-8 (Version None)
Quarter: 2011Q3

REPORT INFORMATION
  Report Type: 
  Country: None (occurrence: None)
  Receive Date: 20110722
  Receipt Date: 20110722
  Transmission Date: 20111222
  Serious: Yes (Other)
  Sender: FDA-Public Use
  Company Number: None

PATIENT
  Sex: Female
  Weight: 56.699 kg

DRUGS (1)
  1. GILENYA [Suspect]
     Indication: RELAPSING-REMITTING MULTIPLE SCLEROSIS
     Dates: start: 20110701, end: 20110716

REACTIONS (6)
  - HYPOAESTHESIA [None]
  - PAIN IN EXTREMITY [None]
  - BREAST SWELLING [None]
  - BREAST PAIN [None]
  - CHEST PAIN [None]
  - PAIN [None]
